FAERS Safety Report 9513726 (Version 1)
Quarter: 2013Q1

REPORT INFORMATION
  Report Type: Spontaneous
  Country: US (occurrence: None)
  Receive Date: 20130305
  Receipt Date: 20130305
  Transmission Date: 20140127
  Serious: Yes (Disabling, Other)
  Sender: FDA-Public Use
  Company Number: 163-21880-12102263

PATIENT
  Age: 66 Year
  Sex: Male

DRUGS (2)
  1. REVLIMID [Suspect]
     Indication: PLASMA CELL MYELOMA
     Dosage: 5 MG, EVERY 3RD DAY, PO
     Route: 048
     Dates: start: 20111221, end: 20120904
  2. AMINOCAPROIC ACID (AMINOCAPROIC ACID) (TABLETS) [Concomitant]

REACTIONS (1)
  - Fatigue [None]
